FAERS Safety Report 7099063-7 (Version None)
Quarter: 2010Q4

REPORT INFORMATION
  Report Type: 
  Country: None (occurrence: None)
  Receive Date: 20101112
  Receipt Date: 20101108
  Transmission Date: 20110411
  Serious: Yes (Congenital Anomaly)
  Sender: FDA-Public Use
  Company Number: A0680974A

PATIENT
  Sex: Male

DRUGS (12)
  1. PAXIL [Suspect]
     Indication: DEPRESSION
     Dosage: 20MG PER DAY
     Dates: start: 20021101, end: 20030901
  2. PRENATAL VITAMINS [Concomitant]
  3. AMITRIPTYLINE HCL [Concomitant]
     Dates: start: 20030701
  4. HYDROCODONE BITARTRATE + ACETAMINOPHEN [Concomitant]
     Dates: start: 20030801
  5. PROPOXYPHENE NAPSYLATE AND ACETAMINOPHEN [Concomitant]
     Dates: start: 20030401
  6. BUTALBITAL ACETAMINOPHEN AND CAFFEINE [Concomitant]
     Dates: start: 20030101
  7. NALEX [Concomitant]
     Dates: start: 20030101
  8. PERCOCET [Concomitant]
     Dates: start: 20030801
  9. VERAPAMIL [Concomitant]
  10. PROMETHEGAN [Concomitant]
  11. IBUPROFEN [Concomitant]
  12. FERROUS SULFATE TAB [Concomitant]

REACTIONS (5)
  - ATRIAL SEPTAL DEFECT [None]
  - DRUG EXPOSURE DURING PREGNANCY [None]
  - HEART DISEASE CONGENITAL [None]
  - MATERNAL DRUGS AFFECTING FOETUS [None]
  - MULTIPLE CONGENITAL ABNORMALITIES [None]
